FAERS Safety Report 10666331 (Version 1)
Quarter: 2014Q4

REPORT INFORMATION
  Report Type: Spontaneous
  Country: FR (occurrence: FR)
  Receive Date: 20141220
  Receipt Date: 20141220
  Transmission Date: 20150529
  Serious: Yes (Hospitalization)
  Sender: FDA-Public Use
  Company Number: FR-009507513-1412FRA008316

PATIENT
  Age: 26 Year
  Sex: Female
  Weight: 64 kg

DRUGS (4)
  1. DIPROSONE [Suspect]
     Active Substance: BETAMETHASONE DIPROPIONATE
     Dosage: UNK
     Route: 003
     Dates: start: 201408, end: 201410
  2. REMICADE [Suspect]
     Active Substance: INFLIXIMAB
     Indication: ANKYLOSING SPONDYLITIS
     Dosage: STRENGTH: 5MG/KG, FREQUENCY: ONCE EVERY THREE WEEKS, LET 340 MG PER COURSE
     Route: 042
     Dates: start: 20140722, end: 20140722
  3. REMICADE [Suspect]
     Active Substance: INFLIXIMAB
     Dosage: STRENGTH: 5MG/KG, FREQUENCY: ONCE EVERY THREE WEEKS, LET 340 MG PER COURSE
     Route: 042
     Dates: start: 20140808, end: 20140808
  4. REMICADE [Suspect]
     Active Substance: INFLIXIMAB
     Dosage: STRENGTH: 5MG/KG, FREQUENCY: ONCE EVERY THREE WEEKS, LET 340 MG PER COURSE
     Route: 042
     Dates: start: 20140903, end: 20140903

REACTIONS (2)
  - Skin infection [Recovering/Resolving]
  - Pustular psoriasis [Recovering/Resolving]

NARRATIVE: CASE EVENT DATE: 201408
